FAERS Safety Report 13125482 (Version 1)
Quarter: 2017Q1

REPORT INFORMATION
  Report Type: Spontaneous
  Country: JP (occurrence: JP)
  Receive Date: 20170118
  Receipt Date: 20170118
  Transmission Date: 20170428
  Serious: Yes (Other)
  Sender: FDA-Public Use
  Company Number: JP-SA-2017SA007958

PATIENT

DRUGS (2)
  1. LANTUS [Suspect]
     Active Substance: INSULIN GLARGINE
     Route: 042
  2. NOVORAPID [Suspect]
     Active Substance: INSULIN ASPART
     Route: 042

REACTIONS (1)
  - Victim of crime [Unknown]
